FAERS Safety Report 18264542 (Version 1)
Quarter: 2020Q3

REPORT INFORMATION
  Report Type: Spontaneous
  Country: US (occurrence: US)
  Receive Date: 20200914
  Receipt Date: 20200914
  Transmission Date: 20201103
  Serious: No
  Sender: FDA-Public Use
  Company Number: US-PFIZER INC-2020353713

PATIENT
  Age: 48 Year
  Sex: Male
  Weight: 87.08 kg

DRUGS (4)
  1. LENVIMA [Concomitant]
     Active Substance: LENVATINIB
     Dosage: UNK
  2. EVEROLIMUS. [Suspect]
     Active Substance: EVEROLIMUS
     Dosage: UNK
  3. KEYTRUDA [Concomitant]
     Active Substance: PEMBROLIZUMAB
     Dosage: UNK
  4. INLYTA [Suspect]
     Active Substance: AXITINIB
     Indication: RENAL CANCER
     Dosage: 3 MG, 2X/DAY (EVERY 12 HOURS)
     Route: 048

REACTIONS (1)
  - Rash [Unknown]
